FAERS Safety Report 8505598-X (Version None)
Quarter: 2012Q3

REPORT INFORMATION
  Report Type: 
  Country: None (occurrence: None)
  Receive Date: 20120703
  Receipt Date: 20120625
  Transmission Date: 20120928
  Serious: Yes (Hospitalization)
  Sender: FDA-Public Use
  Company Number: 2011SP050079

PATIENT
  Age: 34 Year
  Sex: Female
  Weight: 75 kg

DRUGS (4)
  1. NEXPLANON [Suspect]
     Indication: PRODUCT USED FOR UNKNOWN INDICATION
     Dosage: 1 DF
     Dates: start: 20110121
  2. MIRENA [Concomitant]
  3. ORAL CONTRACEPTIVE NOS [Concomitant]
  4. NEXPLANON [Suspect]

REACTIONS (4)
  - DRUG INEFFECTIVE [None]
  - PREGNANCY WITH IMPLANT CONTRACEPTIVE [None]
  - ABORTION INDUCED [None]
  - MATERNAL EXPOSURE DURING PREGNANCY [None]
